FAERS Safety Report 6472202-4 (Version None)
Quarter: 2009Q4

REPORT INFORMATION
  Report Type: 
  Country: None (occurrence: None)
  Receive Date: 20091201
  Receipt Date: 20091127
  Transmission Date: 20100525
  Serious: Yes (Other)
  Sender: FDA-Public Use
  Company Number: 2009SP024986

PATIENT
  Age: 33 Year
  Sex: Female
  Weight: 45 kg

DRUGS (1)
  1. CLARITIN [Suspect]
     Indication: URTICARIA
     Dosage: 10 MG;QD;PO
     Route: 048
     Dates: start: 20081201

REACTIONS (4)
  - GINGIVAL BLEEDING [None]
  - GINGIVAL HYPERTROPHY [None]
  - LOOSE TOOTH [None]
  - TOOTH LOSS [None]
